FAERS Safety Report 5237685-6 (Version None)
Quarter: 2007Q1

REPORT INFORMATION
  Report Type: 
  Country: None (occurrence: None)
  Receive Date: 20070214
  Receipt Date: 20070131
  Transmission Date: 20070707
  Serious: Yes (Hospitalization, Other)
  Sender: FDA-Public Use
  Company Number: DE-ELI_LILLY_AND_COMPANY-DE200702001525

PATIENT
  Age: 66 Year
  Sex: Female

DRUGS (4)
  1. DULOXETINE HYDROCHLORIDE [Suspect]
     Indication: STRESS URINARY INCONTINENCE
     Dosage: UNK, UNK
     Route: 048
     Dates: start: 20060523
  2. SIMVAHEXAL [Concomitant]
     Dosage: 20 MG, DAILY (1/D)
     Route: 048
     Dates: start: 20060612, end: 20060829
  3. LEVOTHYROXINE SODIUM [Concomitant]
     Dosage: 100 MG, UNK
     Route: 048
  4. ASPIRIN [Concomitant]
     Dosage: UNK MG, UNK
     Route: 048

REACTIONS (2)
  - HEPATIC ENZYME INCREASED [None]
  - UPPER LIMB FRACTURE [None]
